FAERS Safety Report 4958946-1 (Version None)
Quarter: 2006Q1

REPORT INFORMATION
  Report Type: 
  Country: None (occurrence: None)
  Receive Date: 20060324
  Receipt Date: 20060313
  Transmission Date: 20060701
  Serious: Yes (Other)
  Sender: FDA-Public Use
  Company Number: 2006031468

PATIENT
  Age: 82 Year
  Sex: Female

DRUGS (3)
  1. ROGAINE [Suspect]
     Indication: ALOPECIA
     Dosage: TO THE DROPPERLINE ONCE DAILY, TOPICAL
     Route: 061
     Dates: start: 20051201, end: 20060201
  2. LEVOTHYROXINE SODIUM [Concomitant]
  3. LANSOPRAZOLE [Concomitant]

REACTIONS (2)
  - BLOOD PRESSURE INCREASED [None]
  - HALLUCINATION, AUDITORY [None]
